FAERS Safety Report 25930579 (Version 1)
Quarter: 2025Q4

REPORT INFORMATION
  Report Type: Spontaneous
  Country: US (occurrence: None)
  Receive Date: 20251016
  Receipt Date: 20251016
  Transmission Date: 20260117
  Serious: Yes (Other)
  Sender: FDA-CTU
  Company Number: None

PATIENT
  Age: 46 Year
  Sex: Female

DRUGS (1)
  1. OTEZLA [Suspect]
     Active Substance: APREMILAST
     Indication: Psoriasis
     Dosage: OTEZLA 30MG; BID   ?SOTYKTU 6MG QD

REACTIONS (4)
  - Cholecystectomy [None]
  - COVID-19 [None]
  - Psoriasis [None]
  - Intentional dose omission [None]
